FAERS Safety Report 14586428 (Version 2)
Quarter: 2018Q1

REPORT INFORMATION
  Report Type: Report from Study
  Country: DE (occurrence: DE)
  Receive Date: 20180301
  Receipt Date: 20180313
  Transmission Date: 20180509
  Serious: No
  Sender: FDA-Public Use
  Company Number: DE-PFIZER INC-2016507312

PATIENT
  Sex: Female

DRUGS (1)
  1. SUTENT [Suspect]
     Active Substance: SUNITINIB MALATE
     Indication: METASTATIC RENAL CELL CARCINOMA
     Dosage: AS FIRST LINE

REACTIONS (4)
  - Palmar-plantar erythrodysaesthesia syndrome [Unknown]
  - Blood glucose increased [Unknown]
  - Neoplasm progression [Unknown]
  - Blood pressure increased [Unknown]
